FAERS Safety Report 9521876 (Version 1)
Quarter: 2013Q3

REPORT INFORMATION
  Report Type: Spontaneous
  Country: US (occurrence: None)
  Receive Date: 20130911
  Receipt Date: 20130911
  Transmission Date: 20140515
  Serious: No
  Sender: FDA-Public Use
  Company Number: AEUSA201300073

PATIENT
  Age: 51 Year
  Sex: Female
  Weight: 75.7 kg

DRUGS (5)
  1. GAMUNEX-C [Suspect]
     Indication: ACUTE MYELOID LEUKAEMIA
     Route: 042
     Dates: start: 20110214
  2. ALBUTEROL /00139501/ [Concomitant]
  3. PARACETAMOL [Concomitant]
  4. BENADRYL /00000402/ [Concomitant]
  5. FAMOTIDINE [Concomitant]

REACTIONS (4)
  - Pain in extremity [None]
  - Infusion related reaction [None]
  - Incorrect drug administration rate [None]
  - Wrong technique in drug usage process [None]
